FAERS Safety Report 6471511-2 (Version None)
Quarter: 2009Q4

REPORT INFORMATION
  Report Type: 
  Country: None (occurrence: None)
  Receive Date: 20091201
  Receipt Date: 20091125
  Transmission Date: 20100525
  Serious: Yes (Hospitalization)
  Sender: FDA-Public Use
  Company Number: 8049561

PATIENT
  Age: 68 Year
  Sex: Female
  Weight: 102.7 kg

DRUGS (26)
  1. CDP870 [Suspect]
     Indication: RHEUMATOID ARTHRITIS
     Dosage: 400 MG 1/2W SC
     Route: 058
     Dates: end: 20090817
  2. CDP870 [Suspect]
     Indication: RHEUMATOID ARTHRITIS
     Dosage: 200 MG 1/2W SC
     Route: 058
  3. CDP870 [Suspect]
     Indication: RHEUMATOID ARTHRITIS
     Dosage: 200 MG 1/2W SC
     Route: 058
     Dates: start: 20090127
  4. METHOTREXATE [Concomitant]
  5. PRILOSEC [Concomitant]
  6. FUROSEMIDE [Concomitant]
  7. SPIRONOLACTONE [Concomitant]
  8. DICYCLOMINE [Concomitant]
  9. ESTRDIOL [Concomitant]
  10. LOVAZA [Concomitant]
  11. COQ10 [Concomitant]
  12. VITAMIN D [Concomitant]
  13. ASCORBIC ACID [Concomitant]
  14. CRESTOR [Concomitant]
  15. VICODIN [Concomitant]
  16. POTASSIUM CHLORIDE [Concomitant]
  17. QUININE [Concomitant]
  18. FOSINOPRIL SODIUM [Concomitant]
  19. FOLIC ACID [Concomitant]
  20. PREDNISONE [Concomitant]
  21. ZETIA [Concomitant]
  22. AMIODARONE HCL [Concomitant]
  23. DIGOXIN [Concomitant]
  24. BENADRYL [Concomitant]
  25. WARFARIN SODIUM [Concomitant]
  26. CARVEDILOL [Concomitant]

REACTIONS (23)
  - ACTIVATED PARTIAL THROMBOPLASTIN TIME PROLONGED [None]
  - ASTHENIA [None]
  - BLOOD CHLORIDE DECREASED [None]
  - BLOOD PRESSURE DECREASED [None]
  - BLOOD SODIUM DECREASED [None]
  - CARDIOACTIVE DRUG LEVEL INCREASED [None]
  - CHOLELITHIASIS [None]
  - DEHYDRATION [None]
  - ESCHERICHIA URINARY TRACT INFECTION [None]
  - EXOSTOSIS [None]
  - INTERNATIONAL NORMALISED RATIO INCREASED [None]
  - LYMPHOCYTE COUNT DECREASED [None]
  - MEAN CELL HAEMOGLOBIN INCREASED [None]
  - MEAN CELL VOLUME INCREASED [None]
  - NAUSEA [None]
  - NEUROPATHY PERIPHERAL [None]
  - PROTHROMBIN TIME PROLONGED [None]
  - RED BLOOD CELL COUNT DECREASED [None]
  - SPINAL OSTEOARTHRITIS [None]
  - URINARY TRACT INFECTION [None]
  - URINE ABNORMALITY [None]
  - URINE COLOUR ABNORMAL [None]
  - VOMITING [None]
